FAERS Safety Report 14827426 (Version 3)
Quarter: 2020Q4

REPORT INFORMATION
  Report Type: Spontaneous
  Country: US (occurrence: US)
  Receive Date: 20180430
  Receipt Date: 20201023
  Transmission Date: 20210113
  Serious: Yes (Life-Threatening, Hospitalization, Other)
  Sender: FDA-Public Use
  Company Number: US-PFIZER INC-2018172772

PATIENT
  Age: 10 Year
  Sex: Female

DRUGS (24)
  1. VINCRISTINE SULFATE. [Suspect]
     Active Substance: VINCRISTINE SULFATE
     Dosage: 0.75 MG/M2, CYCLIC (FURTHER 50% DOSE REDUCTION OF VINCRISTINE AT 0.75 MG/M2)
  2. 6-MERCAPTOPURINE MONOHYDRATE [Suspect]
     Active Substance: MERCAPTOPURINE
     Dosage: UNK, CYCLIC (IN WEEKS 3 AND 4 OF CONSOLIDATION, 1 DOSE OF 6-MP)
  3. 6-MERCAPTOPURINE MONOHYDRATE [Suspect]
     Active Substance: MERCAPTOPURINE
     Dosage: 40 MG/M2, CYCLIC (50% DOSE REDUCTION)
  4. VINCRISTINE SULFATE. [Suspect]
     Active Substance: VINCRISTINE SULFATE
     Dosage: UNK, CYCLIC (50% DOSE REDUCTION)
  5. 6-MERCAPTOPURINE MONOHYDRATE [Suspect]
     Active Substance: MERCAPTOPURINE
     Dosage: 60 MG/M2, CYCLIC (FIRST 2 WEEKS OF CONSOLIDATION CHEMOTHERAPY)
  6. 6-MERCAPTOPURINE MONOHYDRATE [Suspect]
     Active Substance: MERCAPTOPURINE
     Dosage: UNK (HELD FOR THE REST OF CONSOLIDATION)
  7. 6-MERCAPTOPURINE MONOHYDRATE [Suspect]
     Active Substance: MERCAPTOPURINE
     Indication: B PRECURSOR TYPE ACUTE LEUKAEMIA
     Dosage: UNK, CYCLIC (INDUCTION CHEMOTHERAPY)
  8. 6-MERCAPTOPURINE MONOHYDRATE [Suspect]
     Active Substance: MERCAPTOPURINE
     Dosage: UNK, CYCLIC (SCALED UP PROGRESSIVELY; DOSE REMAINS REDUCED)
  9. THIOGUANINE [Suspect]
     Active Substance: THIOGUANINE
     Indication: B PRECURSOR TYPE ACUTE LEUKAEMIA
     Dosage: 60 MG/M2, CYCLIC (DURING DELAYED INTENSIFICATION)
  10. PEG/L-ASPARAGINASE [Concomitant]
     Active Substance: PEGASPARGASE
     Dosage: UNK UNK (CONSOLIDATION CHEMOTHERAPY)
  11. METHOTREXATE. [Concomitant]
     Active Substance: METHOTREXATE
     Dosage: UNK, CYCLIC (FULL DOSES)
  12. METHOTREXATE. [Concomitant]
     Active Substance: METHOTREXATE
     Dosage: UNK, CYCLIC (SEQUENTIALLY INCREASED)
  13. DAUNORUBICIN [Concomitant]
     Active Substance: DAUNORUBICIN
     Indication: B PRECURSOR TYPE ACUTE LEUKAEMIA
     Dosage: UNK, CYCLIC (INDUCTION CHEMOTHERAPY)
  14. CYCLOPHOSPHAMIDE. [Concomitant]
     Active Substance: CYCLOPHOSPHAMIDE
     Indication: ACUTE LYMPHOCYTIC LEUKAEMIA
     Dosage: UNK, CYCLIC
  15. VINCRISTINE SULFATE. [Suspect]
     Active Substance: VINCRISTINE SULFATE
     Dosage: 1.5 MG/M2, CYCLIC (FIRST 2 WEEKS OF CONSOLIDATION CHEMOTHERAPY)
  16. VINCRISTINE SULFATE. [Suspect]
     Active Substance: VINCRISTINE SULFATE
     Dosage: UNK, CYCLIC (FULL DOSES OF VINCRISTINE; MAINTENANCE THERAPY)
  17. 6-MERCAPTOPURINE MONOHYDRATE [Suspect]
     Active Substance: MERCAPTOPURINE
     Dosage: 25 MG/M2, CYCLIC (PROTOCOL-GUIDED FULL DOSE, DURING INTERIM MAINTENANCE)
  18. 6-MERCAPTOPURINE MONOHYDRATE [Suspect]
     Active Substance: MERCAPTOPURINE
     Dosage: 75 MG/M2, CYCLIC (PROTOCOL-GUIDED FULL DOSING OF 6-MP)
  19. PEG/L-ASPARAGINASE [Concomitant]
     Active Substance: PEGASPARGASE
     Indication: B PRECURSOR TYPE ACUTE LEUKAEMIA
     Dosage: UNK, CYCLIC (INDUCTION CHEMOTHERAPY)
  20. METHOTREXATE. [Concomitant]
     Active Substance: METHOTREXATE
     Indication: B PRECURSOR TYPE ACUTE LEUKAEMIA
     Dosage: 20 MG/M2, WEEKLY
  21. PREDNISONE. [Concomitant]
     Active Substance: PREDNISONE
     Indication: B PRECURSOR TYPE ACUTE LEUKAEMIA
     Dosage: UNK, CYCLIC (INDUCTION CHEMOTHERAPY)
  22. VINCRISTINE SULFATE. [Suspect]
     Active Substance: VINCRISTINE SULFATE
     Indication: B PRECURSOR TYPE ACUTE LEUKAEMIA
     Dosage: UNK, CYCLIC (INDUCTION CHEMOTHERAPY)
  23. VINCRISTINE SULFATE. [Suspect]
     Active Substance: VINCRISTINE SULFATE
     Dosage: UNK, CYCLIC (REDUCED BY 75%)
  24. CYTARABINE. [Concomitant]
     Active Substance: CYTARABINE
     Indication: ACUTE LYMPHOCYTIC LEUKAEMIA
     Dosage: UNK, CYCLIC

REACTIONS (5)
  - Jaundice [Recovered/Resolved]
  - Cholestasis [Recovered/Resolved]
  - Bilirubin conjugated increased [Recovered/Resolved]
  - Liver injury [Recovered/Resolved]
  - Hepatotoxicity [Recovered/Resolved]
